FAERS Safety Report 24305651 (Version 1)
Quarter: 2024Q3

REPORT INFORMATION
  Report Type: Spontaneous
  Country: US (occurrence: US)
  Receive Date: 20240911
  Receipt Date: 20240911
  Transmission Date: 20241016
  Serious: Yes (Other)
  Sender: SHANGHAI HENGRUI PHARMACEUTICAL
  Company Number: US-Shanghai Hengrui Pharmaceutical Co., Ltd.-2161464

PATIENT
  Age: 57 Year
  Sex: Female

DRUGS (10)
  1. SEVOFLURANE [Suspect]
     Active Substance: SEVOFLURANE
     Indication: Maintenance of anaesthesia
  2. CYCLOPHOSPHAMIDE [Suspect]
     Active Substance: CYCLOPHOSPHAMIDE
  3. SUGAMMADEX [Concomitant]
     Active Substance: SUGAMMADEX
  4. KETOROLAC [Suspect]
     Active Substance: KETOROLAC TROMETHAMINE
  5. HYDROMORPHONE [Suspect]
     Active Substance: HYDROMORPHONE
  6. ROCURONIUM [Suspect]
     Active Substance: ROCURONIUM BROMIDE
  7. PROPOFOL [Suspect]
     Active Substance: PROPOFOL
  8. LIDOCAINE [Suspect]
     Active Substance: LIDOCAINE
  9. FENTANYL [Suspect]
     Active Substance: FENTANYL\FENTANYL CITRATE
  10. DOCETAXEL [Suspect]
     Active Substance: DOCETAXEL\DOCETAXEL ANHYDROUS

REACTIONS (1)
  - Neuropathy peripheral [Recovered/Resolved]
